FAERS Safety Report 16671691 (Version 4)
Quarter: 2020Q1

REPORT INFORMATION
  Report Type: Report from Study
  Country: FR (occurrence: FR)
  Receive Date: 20190806
  Receipt Date: 20200115
  Transmission Date: 20200409
  Serious: Yes (Death, Hospitalization, Other)
  Sender: FDA-Public Use
  Company Number: FR-TAKEDA-2019TUS046571

PATIENT
  Sex: Male
  Weight: 66 kg

DRUGS (5)
  1. INNOHEP [Concomitant]
     Active Substance: TINZAPARIN SODIUM
     Dosage: UNK
     Route: 065
  2. IXAZOMIB [Suspect]
     Active Substance: IXAZOMIB
     Indication: PLASMA CELL MYELOMA
     Dosage: 4 MILLIGRAM
     Route: 048
     Dates: start: 20181109, end: 20190115
  3. REVLIMID [Suspect]
     Active Substance: LENALIDOMIDE
     Indication: PLASMA CELL MYELOMA
     Dosage: 25 MILLIGRAM
     Route: 048
     Dates: start: 20181109, end: 20190115
  4. SELINEXOR [Suspect]
     Active Substance: SELINEXOR
     Indication: PLASMA CELL MYELOMA
     Dosage: 80 MILLIGRAM, 1/WEEK
     Route: 065
     Dates: start: 20191028
  5. XARELTO [Concomitant]
     Active Substance: RIVAROXABAN
     Indication: ANTICOAGULANT THERAPY
     Dosage: 20 MILLIGRAM
     Route: 065
     Dates: start: 20180926

REACTIONS (5)
  - Lumbar vertebral fracture [Recovering/Resolving]
  - Pain [Recovering/Resolving]
  - Plasma cell myeloma [Fatal]
  - Plasma cell myeloma recurrent [Recovering/Resolving]
  - Osteolysis [Unknown]

NARRATIVE: CASE EVENT DATE: 20190107
